FAERS Safety Report 15898417 (Version 1)
Quarter: 2019Q1

REPORT INFORMATION
  Report Type: Spontaneous
  Country: US (occurrence: US)
  Receive Date: 20190201
  Receipt Date: 20190201
  Transmission Date: 20190417
  Serious: No
  Sender: FDA-Public Use
  Company Number: US-KADMON PHARMACEUTICALS, LLC-KAD-201803-01268

PATIENT
  Sex: Female

DRUGS (5)
  1. INTERFERON [Suspect]
     Active Substance: INTERFERON
  2. PEGASYS [Suspect]
     Active Substance: PEGINTERFERON ALFA-2A
  3. CHANTIX [Suspect]
     Active Substance: VARENICLINE TARTRATE
     Dates: start: 20180312
  4. CALCIUM [Concomitant]
     Active Substance: CALCIUM
  5. RIBAVIRIN. [Suspect]
     Active Substance: RIBAVIRIN
     Indication: HEPATITIS C
     Dosage: TABLET
     Route: 048

REACTIONS (8)
  - Fungal infection [Unknown]
  - Eye infection [Unknown]
  - Depression [Unknown]
  - Dental caries [Unknown]
  - Back pain [Unknown]
  - Procedural pain [Recovering/Resolving]
  - Sinusitis [Unknown]
  - Chondrocalcinosis pyrophosphate [Unknown]

NARRATIVE: CASE EVENT DATE: 201803
